FAERS Safety Report 4467921-5 (Version None)
Quarter: 2004Q4

REPORT INFORMATION
  Report Type: 
  Country: None (occurrence: None)
  Receive Date: 20041004
  Receipt Date: 20040916
  Transmission Date: 20050328
  Serious: Yes (Hospitalization)
  Sender: FDA-Public Use
  Company Number: 2004-BP-07631NB

PATIENT
  Age: 72 Year
  Sex: Female

DRUGS (4)
  1. BI-SIFROL TABLETS (PRAMIPEXOLE DIHYROCHLORIDE) (TA) [Suspect]
     Indication: PARKINSON'S DISEASE
     Dosage: 1 MG
     Route: 048
     Dates: start: 20040604, end: 20040727
  2. PAXIL [Suspect]
     Indication: DEPRESSION
     Dosage: 20 MG
     Route: 048
     Dates: start: 20040702, end: 20040727
  3. LOCHOL (FLUVASTATIN SODIUM) (KA) [Suspect]
     Dosage: 30 MG
     Route: 048
     Dates: start: 20040702, end: 20040727
  4. ALPRAZOLAM [Suspect]
     Dosage: 0.4 MG
     Route: 048
     Dates: start: 20040618, end: 20040726

REACTIONS (1)
  - LIVER DISORDER [None]
